FAERS Safety Report 4280649-X (Version None)
Quarter: 2004Q1

REPORT INFORMATION
  Report Type: 
  Country: None (occurrence: None)
  Receive Date: 20040123
  Receipt Date: 20031225
  Transmission Date: 20041129
  Serious: Yes (Other)
  Sender: FDA-Public Use
  Company Number: MAG-2003-0000216

PATIENT
  Age: 73 Year
  Sex: Female

DRUGS (2)
  1. POVIDONE IODINE [Suspect]
     Indication: WOUND
     Dosage: TOPICAL
     Route: 061
     Dates: start: 20031210, end: 20031210
  2. GENTACIN (GENTAMICIN SULFATE) [Concomitant]

REACTIONS (1)
  - ANAPHYLACTIC SHOCK [None]
